FAERS Safety Report 11625593 (Version 5)
Quarter: 2017Q4

REPORT INFORMATION
  Report Type: Report from Study
  Country: US (occurrence: US)
  Receive Date: 20151013
  Receipt Date: 20171103
  Transmission Date: 20180320
  Serious: Yes (Hospitalization)
  Sender: FDA-Public Use
  Company Number: US-ACTELION-A-NJ2015-125112

PATIENT
  Age: 37 Year
  Sex: Female
  Weight: 54.42 kg

DRUGS (3)
  1. TYVASO [Concomitant]
     Active Substance: TREPROSTINIL
  2. REVATIO [Concomitant]
     Active Substance: SILDENAFIL CITRATE
  3. OPSUMIT [Suspect]
     Active Substance: MACITENTAN
     Indication: PULMONARY HYPERTENSION
     Dosage: 10 MG, QD
     Route: 048
     Dates: start: 20150714

REACTIONS (8)
  - Dyspnoea [Unknown]
  - Device malfunction [Unknown]
  - Internal haemorrhage [Unknown]
  - Blood cholesterol abnormal [Unknown]
  - Gastric haemorrhage [Unknown]
  - Gastric disorder [Unknown]
  - Dialysis [Unknown]
  - Renal disorder [Unknown]
